FAERS Safety Report 11908252 (Version 1)
Quarter: 2016Q1

REPORT INFORMATION
  Report Type: Spontaneous
  Country: FR (occurrence: FR)
  Receive Date: 20160111
  Receipt Date: 20160111
  Transmission Date: 20160526
  Serious: Yes (Death, Other)
  Sender: FDA-Public Use
  Company Number: PHHY2015FR170313

PATIENT
  Age: 19 Year
  Sex: Female

DRUGS (4)
  1. TRIMEBUTINE [Suspect]
     Active Substance: TRIMEBUTINE
     Indication: PRODUCT USED FOR UNKNOWN INDICATION
     Dosage: 747 NG/ML, UNK
     Route: 065
  2. PARACETAMOL [Suspect]
     Active Substance: ACETAMINOPHEN
     Indication: PRODUCT USED FOR UNKNOWN INDICATION
     Route: 065
  3. ACETYLSALICYLIC ACID [Suspect]
     Active Substance: ASPIRIN
     Indication: PRODUCT USED FOR UNKNOWN INDICATION
     Route: 065
  4. TRIMEBUTINE [Suspect]
     Active Substance: TRIMEBUTINE
     Dosage: 77 NG/ML, UNK
     Route: 065

REACTIONS (7)
  - Poisoning deliberate [Fatal]
  - Bradycardia [Unknown]
  - Toxicity to various agents [Fatal]
  - Cardio-respiratory arrest [Unknown]
  - Ventricular fibrillation [Unknown]
  - Seizure [Unknown]
  - Ischaemia [Fatal]
